FAERS Safety Report 4852724-X (Version None)
Quarter: 2005Q4

REPORT INFORMATION
  Report Type: 
  Country: None (occurrence: None)
  Receive Date: 20051213
  Receipt Date: 20050926
  Transmission Date: 20060501
  Serious: Yes (Hospitalization)
  Sender: FDA-Public Use
  Company Number: US-MERCK-0509USA03776

PATIENT
  Age: 65 Year
  Sex: Male
  Weight: 95 kg

DRUGS (5)
  1. VIOXX [Suspect]
     Indication: ARTHRALGIA
     Route: 048
     Dates: start: 19991007, end: 20040902
  2. HYZAAR [Concomitant]
     Route: 048
  3. TYLENOL [Concomitant]
     Route: 065
  4. ADVIL [Concomitant]
     Route: 065
  5. VIAGRA [Concomitant]
     Route: 065

REACTIONS (17)
  - ABSCESS LIMB [None]
  - ACUTE MYOCARDIAL INFARCTION [None]
  - BLADDER DISORDER [None]
  - CORONARY ARTERY DISEASE [None]
  - GASTROOESOPHAGEAL REFLUX DISEASE [None]
  - HEADACHE [None]
  - HYPERTENSION [None]
  - IRON DEFICIENCY ANAEMIA [None]
  - JOINT INJURY [None]
  - NEPHROLITHIASIS [None]
  - NON-CARDIAC CHEST PAIN [None]
  - PAIN [None]
  - PHARYNGOLARYNGEAL PAIN [None]
  - RADICULOPATHY [None]
  - REFLUX GASTRITIS [None]
  - SCIATICA [None]
  - TELANGIECTASIA [None]
